FAERS Safety Report 5472781-X (Version None)
Quarter: 2007Q4

REPORT INFORMATION
  Report Type: 
  Country: None (occurrence: None)
  Receive Date: 20071001
  Receipt Date: 20061108
  Transmission Date: 20080405
  Serious: No
  Sender: FDA-Public Use
  Company Number: US-ASTRAZENECA-2006UW22571

PATIENT
  Age: 70 Year
  Sex: Female

DRUGS (2)
  1. ARIMIDEX [Suspect]
  2. BLOOD PRESSURE MEDICATION [Concomitant]

REACTIONS (2)
  - ARTHRALGIA [None]
  - PHARYNGOLARYNGEAL PAIN [None]
